FAERS Safety Report 14203897 (Version 1)
Quarter: 2017Q4

REPORT INFORMATION
  Report Type: Spontaneous
  Country: US (occurrence: None)
  Receive Date: 20171117
  Receipt Date: 20171117
  Transmission Date: 20180321
  Serious: No
  Sender: FDA-Public Use
  Company Number: None

PATIENT
  Sex: Female

DRUGS (2)
  1. RASUVO [Suspect]
     Active Substance: METHOTREXATE SODIUM
     Indication: SYSTEMIC LUPUS ERYTHEMATOSUS
     Dosage: 7.5 MG (0.15ML) QWEEKLY SUBQ
     Route: 058
     Dates: start: 201608
  2. MONISTAT [Concomitant]
     Active Substance: MICONAZOLE NITRATE

REACTIONS (2)
  - Urinary tract infection [None]
  - Fungal infection [None]
